FAERS Safety Report 23961262 (Version 1)
Quarter: 2024Q2

REPORT INFORMATION
  Report Type: Other
  Country: ES (occurrence: ES)
  Receive Date: 20240611
  Receipt Date: 20240611
  Transmission Date: 20240716
  Serious: Yes (Other)
  Sender: FDA-Public Use
  Company Number: None

PATIENT
  Age: 81 Year
  Sex: Female

DRUGS (2)
  1. MIRABEGRON [Suspect]
     Active Substance: MIRABEGRON
     Indication: Nocturia
     Dosage: UNK UNK, OTHER (COMP C/24 H)
     Route: 065
     Dates: start: 20240410, end: 20240531
  2. BLISSEL [Concomitant]
     Indication: Atrophic vulvovaginitis
     Dosage: UNK UNK, OTHER (1.0 APLIC CE)
     Route: 067
     Dates: start: 20240517

REACTIONS (3)
  - Anal incontinence [Recovered/Resolved]
  - Gastritis [Recovered/Resolved]
  - Constipation [Recovered/Resolved]

NARRATIVE: CASE EVENT DATE: 20240525
